FAERS Safety Report 4307292-8 (Version None)
Quarter: 2004Q1

REPORT INFORMATION
  Report Type: 
  Country: None (occurrence: None)
  Receive Date: 20040227
  Receipt Date: 20040219
  Transmission Date: 20041129
  Serious: Yes (Other)
  Sender: FDA-Public Use
  Company Number: WAES 0402GBR00207

PATIENT
  Sex: Female

DRUGS (15)
  1. ACYCLOVIR [Concomitant]
  2. SALBUTAMOL [Concomitant]
  3. AMPHOTERICIN B [Concomitant]
  4. AZATHIOPRINE [Concomitant]
  5. CANCIDAS [Suspect]
     Route: 042
  6. COLISTIN [Concomitant]
  7. HEPARIN [Concomitant]
  8. HYDROCHLOROTHIAZIDE [Concomitant]
  9. IMIPENEM [Concomitant]
  10. LINEZOLID [Concomitant]
  11. NEOMYCIN [Concomitant]
  12. NYSTATIN [Concomitant]
  13. PROPOFOL [Concomitant]
  14. RANITIDINE [Concomitant]
  15. TACROLIMUS [Concomitant]

REACTIONS (1)
  - HYPERPYREXIA [None]
